FAERS Safety Report 6628156-0 (Version None)
Quarter: 2010Q1

REPORT INFORMATION
  Report Type: 
  Country: None (occurrence: None)
  Receive Date: 20100311
  Receipt Date: 20091015
  Transmission Date: 20100710
  Serious: No
  Sender: FDA-Public Use
  Company Number: A0813902A

PATIENT
  Age: 52 Year
  Sex: Female

DRUGS (2)
  1. NICORETTE [Suspect]
     Indication: SMOKING CESSATION THERAPY
     Route: 002
     Dates: start: 20090916
  2. NICOTINE [Suspect]
     Indication: SMOKING CESSATION THERAPY
     Dosage: 14MG PER DAY
     Route: 062
     Dates: start: 20090918

REACTIONS (5)
  - ABNORMAL DREAMS [None]
  - ANGER [None]
  - ASTHENIA [None]
  - DEPRESSION [None]
  - HYPERSOMNIA [None]
